FAERS Safety Report 4713712-7 (Version None)
Quarter: 2005Q3

REPORT INFORMATION
  Report Type: 
  Country: None (occurrence: None)
  Receive Date: 20050713
  Receipt Date: 20050628
  Transmission Date: 20060218
  Serious: Yes (Other)
  Sender: FDA-Public Use
  Company Number: USA050597258

PATIENT
  Sex: Female
  Weight: 80 kg

DRUGS (4)
  1. ALIMTA [Suspect]
     Indication: NON-SMALL CELL LUNG CANCER
     Dosage: 500 MG/M2/1
     Dates: start: 20050322, end: 20050322
  2. FOLIC ACID [Concomitant]
  3. VITAMIN B-12 [Concomitant]
  4. DEXAMETHASONE [Concomitant]

REACTIONS (3)
  - BLOOD CREATININE INCREASED [None]
  - COOMBS POSITIVE HAEMOLYTIC ANAEMIA [None]
  - HYPOTENSION [None]
